FAERS Safety Report 4777162-X (Version None)
Quarter: 2005Q3

REPORT INFORMATION
  Report Type: 
  Country: None (occurrence: None)
  Receive Date: 20050923
  Receipt Date: 20050914
  Transmission Date: 20060218
  Serious: Yes (Other)
  Sender: FDA-Public Use
  Company Number: US-ROCHE-417897

PATIENT
  Age: 38 Year
  Sex: Male
  Weight: 108.9 kg

DRUGS (5)
  1. PEGASYS [Suspect]
     Dosage: STRENGTH: 180 MCG/0.5 ML.
     Route: 058
     Dates: start: 20050828
  2. COPEGUS [Suspect]
     Route: 048
     Dates: start: 20050828
  3. TRAZODONE [Concomitant]
     Indication: DRUG USE FOR UNKNOWN INDICATION
     Route: 048
     Dates: start: 20030615
  4. FLEXERIL [Concomitant]
     Indication: DRUG USE FOR UNKNOWN INDICATION
     Route: 048
     Dates: start: 20030615
  5. LAMICTAL [Concomitant]
     Indication: DRUG USE FOR UNKNOWN INDICATION
     Route: 048
     Dates: start: 20040615

REACTIONS (1)
  - MULTIPLE SCLEROSIS [None]
